FAERS Safety Report 5331071-6 (Version None)
Quarter: 2007Q2

REPORT INFORMATION
  Report Type: 
  Country: None (occurrence: None)
  Receive Date: 20070522
  Receipt Date: 20070521
  Transmission Date: 20071010
  Serious: Yes (Hospitalization)
  Sender: FDA-Public Use
  Company Number: D0053340A

PATIENT
  Age: 45 Year
  Sex: Female
  Weight: 50 kg

DRUGS (6)
  1. QUILONUM [Suspect]
     Dosage: 536MG UNKNOWN
     Route: 048
     Dates: start: 20070520, end: 20070520
  2. LITHIUM CARBONATE [Suspect]
     Dosage: 400MG UNKNOWN
     Route: 048
     Dates: start: 20070520, end: 20070520
  3. JODTHYROX [Suspect]
     Dosage: 200UG UNKNOWN
     Route: 048
     Dates: start: 20070520, end: 20070520
  4. PIROXICAM [Suspect]
     Route: 048
     Dates: start: 20070520, end: 20070520
  5. RISPERDAL [Suspect]
     Route: 048
     Dates: start: 20070520, end: 20070520
  6. VOLTAREN [Suspect]
     Route: 048
     Dates: start: 20070520, end: 20070520

REACTIONS (5)
  - COMA [None]
  - DYSARTHRIA [None]
  - HYPOTENSION [None]
  - INTENTIONAL OVERDOSE [None]
  - SUICIDE ATTEMPT [None]
